FAERS Safety Report 6129121-2 (Version None)
Quarter: 2009Q1

REPORT INFORMATION
  Report Type: 
  Country: None (occurrence: None)
  Receive Date: 20090323
  Receipt Date: 20090323
  Transmission Date: 20090719
  Serious: Yes (Other)
  Sender: FDA-Public Use
  Company Number: None

PATIENT
  Sex: Female
  Weight: 57.6068 kg

DRUGS (7)
  1. ACTONEL [Suspect]
     Indication: OSTEOPOROSIS
     Dosage: 150MGM MONTHLY P.O.
     Route: 048
     Dates: start: 20081001, end: 20090301
  2. ATENOLOL [Concomitant]
  3. NORVASC [Concomitant]
  4. ASPIRIN [Concomitant]
  5. PROTONIX [Concomitant]
  6. ATIVAN [Concomitant]
  7. SYNTHROID [Suspect]

REACTIONS (15)
  - ARTHRALGIA [None]
  - BACK PAIN [None]
  - BALANCE DISORDER [None]
  - BONE PAIN [None]
  - CONJUNCTIVAL DISORDER [None]
  - FALL [None]
  - FATIGUE [None]
  - HYPOAESTHESIA [None]
  - INFLAMMATION [None]
  - INFLUENZA LIKE ILLNESS [None]
  - INSOMNIA [None]
  - MUSCULOSKELETAL STIFFNESS [None]
  - NAUSEA [None]
  - URTICARIA [None]
  - WALKING AID USER [None]
